FAERS Safety Report 8097940 (Version 2)
Quarter: 2015Q2

REPORT INFORMATION
  Report Type: Report from Study
  Country: CN (occurrence: CN)
  Receive Date: 20110819
  Receipt Date: 20150514
  Transmission Date: 20150821
  Serious: Yes (Death, Hospitalization, Other)
  Sender: FDA-Public Use
  Company Number: CN-ROCHE-795972

PATIENT

DRUGS (16)
  1. METHYLPREDNISOLONE. [Suspect]
     Active Substance: METHYLPREDNISOLONE
     Indication: PROPHYLAXIS AGAINST TRANSPLANT REJECTION
     Route: 065
  2. MYCOPHENOLATE MOFETIL. [Suspect]
     Active Substance: MYCOPHENOLATE MOFETIL
     Indication: PROPHYLAXIS AGAINST TRANSPLANT REJECTION
  3. MYCOPHENOLATE MOFETIL. [Suspect]
     Active Substance: MYCOPHENOLATE MOFETIL
     Indication: PROPHYLAXIS AGAINST TRANSPLANT REJECTION
     Dosage: FROM FIRST DAY AFTER SURGERY
     Route: 065
  4. DACLIZUMAB [Suspect]
     Active Substance: DACLIZUMAB
     Indication: PROPHYLAXIS AGAINST TRANSPLANT REJECTION
     Route: 065
  5. MUROMONAB-CD3 [Suspect]
     Active Substance: MUROMONAB-CD3
     Indication: PROPHYLAXIS AGAINST TRANSPLANT REJECTION
     Route: 065
  6. PREDNISOLONE. [Suspect]
     Active Substance: PREDNISOLONE
     Indication: PROPHYLAXIS AGAINST TRANSPLANT REJECTION
     Route: 048
  7. SOMATOSTATIN [Concomitant]
     Active Substance: SOMATOSTATIN
     Indication: RENAL AND PANCREAS TRANSPLANT
     Route: 058
  8. ATG [Suspect]
     Active Substance: LAPINE T-LYMPHOCYTE IMMUNE GLOBULIN
     Indication: PROPHYLAXIS AGAINST TRANSPLANT REJECTION
     Route: 065
  9. TACROLIMUS. [Suspect]
     Active Substance: TACROLIMUS
     Indication: PROPHYLAXIS AGAINST TRANSPLANT REJECTION
     Route: 065
  10. METRONIDAZOLE. [Concomitant]
     Active Substance: METRONIDAZOLE
     Indication: INFECTION PROPHYLAXIS
     Route: 065
  11. METHYLPREDNISOLONE. [Suspect]
     Active Substance: METHYLPREDNISOLONE
     Indication: PROPHYLAXIS AGAINST TRANSPLANT REJECTION
  12. ATG [Suspect]
     Active Substance: LAPINE T-LYMPHOCYTE IMMUNE GLOBULIN
     Indication: PROPHYLAXIS AGAINST TRANSPLANT REJECTION
  13. PREDNISOLONE. [Suspect]
     Active Substance: PREDNISOLONE
     Indication: PROPHYLAXIS AGAINST TRANSPLANT REJECTION
  14. DACLIZUMAB [Suspect]
     Active Substance: DACLIZUMAB
     Indication: PROPHYLAXIS AGAINST TRANSPLANT REJECTION
  15. MUROMONAB-CD3 [Suspect]
     Active Substance: MUROMONAB-CD3
     Indication: PROPHYLAXIS AGAINST TRANSPLANT REJECTION
  16. TACROLIMUS. [Suspect]
     Active Substance: TACROLIMUS
     Indication: PROPHYLAXIS AGAINST TRANSPLANT REJECTION

REACTIONS (8)
  - Urinary tract infection [Unknown]
  - Abdominal pain [Unknown]
  - Multi-organ failure [Fatal]
  - Anastomotic complication [Unknown]
  - Respiratory tract infection fungal [Recovered/Resolved]
  - Sepsis [Unknown]
  - Abdominal infection [Unknown]
  - Lung infection [Fatal]
